FAERS Safety Report 21934184 (Version 1)
Quarter: 2023Q1

REPORT INFORMATION
  Report Type: Report from Study
  Country: EG (occurrence: EG)
  Receive Date: 20230201
  Receipt Date: 20230201
  Transmission Date: 20230417
  Serious: Yes (Other)
  Sender: FDA-Public Use
  Company Number: EG-002147023-NVSC2023EG017204

PATIENT

DRUGS (8)
  1. RUXOLITINIB [Suspect]
     Active Substance: RUXOLITINIB
     Indication: Myelofibrosis
     Dosage: 2 DOSAGE FORM, PER DAY (STARTED: 2 WEEKS AGO) (ONE TAB IN THE MORNING AND ONE TAB IN THE EVENING) FO
     Route: 048
  2. RUXOLITINIB [Suspect]
     Active Substance: RUXOLITINIB
     Dosage: 1 DOSAGE FORM, PER DAY (SHE DIVIDED THE TAB INTO 2 HALVES AND TOOK ONE HALF IN THE MORNING AND ONE H
     Route: 065
  3. TOUJEO [Concomitant]
     Active Substance: INSULIN GLARGINE
     Indication: Diabetes mellitus
     Dosage: 10 DOSAGE FORM, QD (STARTED: 2 YEARS AGO)
     Route: 058
  4. ACTRAPID [Concomitant]
     Active Substance: INSULIN HUMAN
     Indication: Diabetes mellitus
     Dosage: 30 DOSAGE FORM, QD (15 UNITS TWICE PER DAY) (STARTED: 2 YEARS AGO)
     Route: 058
  5. PLENDIL [Concomitant]
     Active Substance: FELODIPINE
     Indication: Hypertension
     Dosage: 1 DOSAGE FORM, QD (MORE THAN 5 YEARS AGO)
     Route: 048
  6. BISOPROLOL FUMARATE [Concomitant]
     Active Substance: BISOPROLOL FUMARATE
     Indication: Hypertension
     Dosage: 1 DOSAGE FORM, QD (MORE THAN 5 YEARS AGO)
     Route: 048
  7. ARICEPT [Concomitant]
     Active Substance: DONEPEZIL HYDROCHLORIDE
     Indication: Memory impairment
     Dosage: 1 DOSAGE FORM, QD (MORE THAN 5 YEARS AGO)
     Route: 048
  8. CHOLEROSE [Concomitant]
     Indication: Blood cholesterol increased
     Dosage: 1 DOSAGE FORM, QD (MORE THAN 5 YEARS AGO)
     Route: 048

REACTIONS (8)
  - Body temperature fluctuation [Recovering/Resolving]
  - Depression [Recovering/Resolving]
  - Intentional product use issue [Unknown]
  - Wrong technique in product usage process [Not Recovered/Not Resolved]
  - Fatigue [Recovering/Resolving]
  - Decreased appetite [Recovering/Resolving]
  - Nausea [Recovering/Resolving]
  - Pain [Recovering/Resolving]
